FAERS Safety Report 16695526 (Version 5)
Quarter: 2022Q1

REPORT INFORMATION
  Report Type: Report from Study
  Country: US (occurrence: US)
  Receive Date: 20190813
  Receipt Date: 20220211
  Transmission Date: 20220423
  Serious: Yes (Other)
  Sender: FDA-Public Use
  Company Number: None

PATIENT
  Sex: Female

DRUGS (1)
  1. MYFORTIC [Suspect]
     Active Substance: MYCOPHENOLATE SODIUM
     Indication: Product used for unknown indication
     Dosage: UNK
     Route: 065

REACTIONS (8)
  - Glomerulosclerosis [Unknown]
  - Systemic lupus erythematosus [Unknown]
  - Inflammation [Unknown]
  - Product dose omission issue [Unknown]
  - Illness [Unknown]
  - Nasopharyngitis [Unknown]
  - Pyrexia [Unknown]
  - Nasal congestion [Unknown]
